FAERS Safety Report 11230074 (Version 1)
Quarter: 2015Q3

REPORT INFORMATION
  Report Type: Spontaneous
  Country: US (occurrence: US)
  Receive Date: 20150701
  Receipt Date: 20150701
  Transmission Date: 20151125
  Serious: Yes (Hospitalization, Other)
  Sender: FDA-Public Use
  Company Number: US-SUN PHARMACEUTICAL INDUSTRIES LTD-2015US-95678

PATIENT
  Age: 76 Year
  Sex: Male

DRUGS (3)
  1. DONEPEZIL. [Suspect]
     Active Substance: DONEPEZIL
     Indication: COGNITIVE DISORDER
     Dosage: 5 MG, QD
     Route: 065
  2. DONEPEZIL. [Suspect]
     Active Substance: DONEPEZIL
     Indication: COGNITIVE DISORDER
     Dosage: 15 MG, QD
     Route: 065
  3. DONEPEZIL. [Suspect]
     Active Substance: DONEPEZIL
     Indication: COGNITIVE DISORDER
     Dosage: 10 MG, DAILY
     Route: 065

REACTIONS (10)
  - Abdominal pain upper [Unknown]
  - Off label use [Recovered/Resolved]
  - Eructation [Unknown]
  - Asthenia [Unknown]
  - Acute kidney injury [Unknown]
  - Impulsive behaviour [Unknown]
  - Cardiac arrest [Unknown]
  - Hiccups [Recovered/Resolved]
  - Aggression [Unknown]
  - Urosepsis [Unknown]

NARRATIVE: CASE EVENT DATE: 201310
